FAERS Safety Report 24667430 (Version 2)
Quarter: 2025Q1

REPORT INFORMATION
  Report Type: Spontaneous
  Country: US (occurrence: US)
  Receive Date: 20241126
  Receipt Date: 20250205
  Transmission Date: 20250409
  Serious: Yes (Hospitalization)
  Sender: BIOMARIN
  Company Number: US-BIOMARINAP-US-2024-162116

PATIENT

DRUGS (11)
  1. PALYNZIQ [Suspect]
     Active Substance: PEGVALIASE-PQPZ
     Indication: Phenylketonuria
     Dosage: 60 MILLIGRAM, QD
     Route: 058
  2. CIPROFLOXACIN [Concomitant]
     Active Substance: CIPROFLOXACIN
     Indication: Product used for unknown indication
  3. CEPHALEXIN [Concomitant]
     Active Substance: CEPHALEXIN
     Indication: Product used for unknown indication
  4. ATORVASTATIN [Concomitant]
     Active Substance: ATORVASTATIN
     Indication: Product used for unknown indication
  5. ENALAPRIL [Concomitant]
     Active Substance: ENALAPRIL
     Indication: Product used for unknown indication
  6. HYDROCHLOROTHIAZIDE [Concomitant]
     Active Substance: HYDROCHLOROTHIAZIDE
     Indication: Product used for unknown indication
  7. SYNJARDY [Concomitant]
     Active Substance: EMPAGLIFLOZIN\METFORMIN HYDROCHLORIDE
     Indication: Product used for unknown indication
  8. LEVEMIR [Concomitant]
     Active Substance: INSULIN DETEMIR
     Indication: Product used for unknown indication
  9. CLARITIN [Concomitant]
     Active Substance: LORATADINE
     Indication: Premedication
  10. PEPCID [Concomitant]
     Active Substance: FAMOTIDINE
     Indication: Premedication
  11. EPINEPHRINE [Concomitant]
     Active Substance: EPINEPHRINE
     Indication: Product used for unknown indication

REACTIONS (3)
  - Toe amputation [Unknown]
  - Musculoskeletal discomfort [Recovering/Resolving]
  - Limb discomfort [Recovering/Resolving]
